FAERS Safety Report 6663756-3 (Version None)
Quarter: 2010Q2

REPORT INFORMATION
  Report Type: 
  Country: None (occurrence: None)
  Receive Date: 20100401
  Receipt Date: 20100324
  Transmission Date: 20101027
  Serious: Yes (Other)
  Sender: FDA-Public Use
  Company Number: BR-BAXTER-2010BH008155

PATIENT
  Sex: Male

DRUGS (4)
  1. PROTHROMPLEX S-TIM 4 [Suspect]
     Indication: HAEMOPHILIA
     Route: 065
  2. KRYOBULIN, UNSPECIFIED [Suspect]
     Indication: HAEMOPHILIA
     Route: 065
  3. BEBULIN [Suspect]
     Indication: HAEMOPHILIA
     Route: 065
  4. ANTIHEMOPHILIC FACTOR (HUMAN) [Suspect]
     Indication: HAEMOPHILIA
     Route: 065

REACTIONS (1)
  - HEPATITIS C [None]
